FAERS Safety Report 22180920 (Version 2)
Quarter: 2023Q2

REPORT INFORMATION
  Report Type: Spontaneous
  Country: US (occurrence: US)
  Receive Date: 20230406
  Receipt Date: 20230518
  Transmission Date: 20230721
  Serious: No
  Sender: FDA-Public Use
  Company Number: US-VIIV HEALTHCARE LIMITED-US2023AMR047261

PATIENT
  Age: 60 Year
  Sex: Female

DRUGS (3)
  1. CABENUVA [Suspect]
     Active Substance: CABOTEGRAVIR\RILPIVIRINE
     Indication: HIV infection
     Dosage: UNK
     Route: 030
     Dates: start: 20230322, end: 202305
  2. CABENUVA [Suspect]
     Active Substance: CABOTEGRAVIR\RILPIVIRINE
  3. CABENUVA [Suspect]
     Active Substance: CABOTEGRAVIR\RILPIVIRINE

REACTIONS (7)
  - Dizziness [Recovered/Resolved]
  - Injection site pain [Recovered/Resolved]
  - Gait disturbance [Recovered/Resolved]
  - Sciatica [Recovered/Resolved]
  - Pain [Recovered/Resolved]
  - Insomnia [Unknown]
  - Discomfort [Unknown]

NARRATIVE: CASE EVENT DATE: 20230322
